FAERS Safety Report 19416359 (Version 1)
Quarter: 2021Q2

REPORT INFORMATION
  Report Type: Spontaneous
  Country: US (occurrence: US)
  Receive Date: 20210614
  Receipt Date: 20210614
  Transmission Date: 20210717
  Serious: Yes (Other)
  Sender: FDA-Public Use
  Company Number: US-PFIZER INC-2021636040

PATIENT
  Sex: Female
  Weight: 74.84 kg

DRUGS (3)
  1. CELONTIN [Suspect]
     Active Substance: METHSUXIMIDE
     Dosage: WEAN OFF DOAGE
  2. CELONTIN [Suspect]
     Active Substance: METHSUXIMIDE
     Indication: SEVERE MYOCLONIC EPILEPSY OF INFANCY
     Dosage: 300 MG TWO CAPSULES TWICE DAILY
     Dates: start: 2002
  3. DEPAKOTE [Concomitant]
     Active Substance: DIVALPROEX SODIUM
     Indication: SEIZURE
     Dosage: UNKNOWN DOSE.
     Dates: start: 1991

REACTIONS (2)
  - Off label use [Unknown]
  - Generalised tonic-clonic seizure [Unknown]
